FAERS Safety Report 10197111 (Version 2)
Quarter: 2014Q2

REPORT INFORMATION
  Report Type: Spontaneous
  Country: FR (occurrence: FR)
  Receive Date: 20140527
  Receipt Date: 20140616
  Transmission Date: 20141212
  Serious: Yes (Other)
  Sender: FDA-Public Use
  Company Number: FR-UCBSA-121863

PATIENT
  Age: 35 Year
  Sex: Male
  Weight: 123 kg

DRUGS (6)
  1. KEPPRA [Suspect]
     Indication: EPILEPSY
     Dosage: 1 G, 2X/DAY (BID)
     Dates: start: 201204
  2. KEPPRA [Suspect]
     Dosage: 500MG
     Dates: start: 201305
  3. CELLCEPT [Suspect]
     Dosage: UNK
  4. PROGRAF [Suspect]
     Dosage: UNK
  5. TRIATEC [Suspect]
     Dosage: UNK
  6. TEMERIT [Suspect]
     Dosage: UNK

REACTIONS (1)
  - Weight increased [Not Recovered/Not Resolved]
